FAERS Safety Report 20364157 (Version 1)
Quarter: 2022Q1

REPORT INFORMATION
  Report Type: Spontaneous
  Country: GB (occurrence: GB)
  Receive Date: 20220121
  Receipt Date: 20220121
  Transmission Date: 20220424
  Serious: Yes (Other)
  Sender: FDA-Public Use
  Company Number: None

PATIENT
  Age: 51 Year
  Sex: Male
  Weight: 112.4 kg

DRUGS (7)
  1. DULOXETINE HYDROCHLORIDE [Suspect]
     Active Substance: DULOXETINE HYDROCHLORIDE
     Indication: Rotator cuff syndrome
     Dosage: 30 MG, DAILY
     Route: 065
     Dates: start: 20211208, end: 20220111
  2. AMITRIPTYLINE [Concomitant]
     Active Substance: AMITRIPTYLINE
     Indication: Arthralgia
     Dosage: 25 MG, EACH EVENING
     Route: 065
     Dates: start: 20211104, end: 20211217
  3. COMIRNATY [Concomitant]
     Active Substance: TOZINAMERAN
     Dosage: 1 DOSAGE FORM, UNK
     Route: 030
     Dates: start: 20211208
  4. DIHYDROCODEINE [Concomitant]
     Active Substance: DIHYDROCODEINE
     Indication: Folliculitis
     Dosage: 30 MG, UNK
     Route: 065
     Dates: start: 20211115
  5. PREGABALIN [Concomitant]
     Active Substance: PREGABALIN
     Indication: Rotator cuff syndrome
     Dosage: 50 MG, TID
     Route: 065
     Dates: start: 20220111
  6. PREGABALIN [Concomitant]
     Active Substance: PREGABALIN
     Dosage: 50 MG, TID
     Route: 065
     Dates: start: 20211220
  7. TRAMADOL [Concomitant]
     Active Substance: TRAMADOL
     Indication: Arthralgia
     Dosage: 50 MG, QID
     Route: 065
     Dates: start: 20211104, end: 20211115

REACTIONS (3)
  - Depression [Recovered/Resolved]
  - Dissociative disorder [Unknown]
  - Off label use [Unknown]

NARRATIVE: CASE EVENT DATE: 20211208
